FAERS Safety Report 15297202 (Version 1)
Quarter: 2018Q3

REPORT INFORMATION
  Report Type: Spontaneous
  Country: US (occurrence: US)
  Receive Date: 20180820
  Receipt Date: 20180820
  Transmission Date: 20181010
  Serious: Yes (Other)
  Sender: FDA-Public Use
  Company Number: US-SA-2018SA221788

PATIENT
  Age: 64 Year
  Sex: Female

DRUGS (4)
  1. REPATHA [Concomitant]
     Active Substance: EVOLOCUMAB
  2. ALIROCUMAB PREFILLED PEN [Suspect]
     Active Substance: ALIROCUMAB
     Dosage: QOW
  3. ASA [Concomitant]
     Active Substance: ASPIRIN
     Dosage: UNK UNK, QD
  4. PRALUENT [Suspect]
     Active Substance: ALIROCUMAB
     Dosage: 75 MG, QOW

REACTIONS (5)
  - Nasal congestion [Unknown]
  - Influenza like illness [Unknown]
  - Pyrexia [Unknown]
  - Systemic lupus erythematosus [Unknown]
  - Rhinorrhoea [Unknown]

NARRATIVE: CASE EVENT DATE: 20180808
